FAERS Safety Report 10145470 (Version 2)
Quarter: 2014Q2

REPORT INFORMATION
  Report Type: Report from Study
  Country: US (occurrence: US)
  Receive Date: 20140501
  Receipt Date: 20140510
  Transmission Date: 20141212
  Serious: Yes (Hospitalization)
  Sender: FDA-Public Use
  Company Number: US-JNJFOC-20140415248

PATIENT
  Age: 24 Year
  Sex: Female
  Weight: 89.5 kg

DRUGS (3)
  1. ACETAMINOPHEN [Suspect]
     Route: 065
  2. ACETAMINOPHEN [Suspect]
     Indication: ABDOMINAL PAIN
     Dosage: 5 TABLETS EVERY 4-5 HOURS
     Route: 065
  3. CITALOPRAM [Concomitant]
     Route: 065

REACTIONS (4)
  - Liver function test abnormal [Recovered/Resolved]
  - Toxicity to various agents [Recovered/Resolved]
  - Overdose [Recovered/Resolved]
  - Vomiting [Recovered/Resolved]
